FAERS Safety Report 10737972 (Version 1)
Quarter: 2015Q1

REPORT INFORMATION
  Report Type: Spontaneous
  Country: US (occurrence: None)
  Receive Date: 20150122
  Receipt Date: 20150122
  Transmission Date: 20150721
  Serious: Yes (Hospitalization)
  Sender: FDA-Public Use
  Company Number: 2014-US-017136

PATIENT
  Age: 61 Year
  Sex: Female
  Weight: 101.6 kg

DRUGS (8)
  1. CYTOMEL (LIOTHYRONINE SODIUM) [Concomitant]
  2. ZOLOFT [Concomitant]
     Active Substance: SERTRALINE HYDROCHLORIDE
  3. BUSPAR (BUSPIRONE HYDROCHLORIDE) [Concomitant]
  4. RITALIN (METHYLPHENIDATE HYDROCHLORIDE) [Concomitant]
     Active Substance: METHYLPHENIDATE HYDROCHLORIDE
  5. TOPAMAX [Concomitant]
     Active Substance: TOPIRAMATE
  6. XYREM [Suspect]
     Active Substance: SODIUM OXYBATE
     Indication: NARCOLEPSY
     Route: 048
     Dates: start: 201308, end: 2014
  7. LAMICTAL [Concomitant]
     Active Substance: LAMOTRIGINE
  8. SINGULAIR [Concomitant]
     Active Substance: MONTELUKAST SODIUM

REACTIONS (4)
  - Fatigue [None]
  - Pneumonia [None]
  - Bronchitis [None]
  - Malaise [None]

NARRATIVE: CASE EVENT DATE: 20141227
